FAERS Safety Report 9463182 (Version 2)
Quarter: 2013Q3

REPORT INFORMATION
  Report Type: Report from Study
  Country: US (occurrence: US)
  Receive Date: 20130818
  Receipt Date: 20130818
  Transmission Date: 20140515
  Serious: Yes (Other)
  Sender: FDA-Public Use
  Company Number: US-US-EMD SERONO, INC.-7208115

PATIENT
  Age: 43 Year
  Sex: Male

DRUGS (3)
  1. REBIF [Suspect]
     Indication: PRODUCT USED FOR UNKNOWN INDICATION
     Dates: start: 20130321
  2. REBIF [Suspect]
     Route: 058
     Dates: start: 201304
  3. LYRICA [Concomitant]
     Indication: PRODUCT USED FOR UNKNOWN INDICATION
     Dates: start: 201304

REACTIONS (4)
  - Intervertebral disc compression [Unknown]
  - Procedural headache [Unknown]
  - Feeling abnormal [Not Recovered/Not Resolved]
  - Influenza like illness [Recovered/Resolved]
